FAERS Safety Report 5129886-2 (Version None)
Quarter: 2006Q4

REPORT INFORMATION
  Report Type: 
  Country: None (occurrence: None)
  Receive Date: 20061012
  Receipt Date: 20060927
  Transmission Date: 20070319
  Serious: Yes (Other)
  Sender: FDA-Public Use
  Company Number: PAR_0722_2006

PATIENT
  Age: 73 Year
  Sex: Female

DRUGS (6)
  1. IBUPROFEN [Suspect]
     Indication: PAIN
     Dosage: 400 MG TID PO
     Route: 048
     Dates: start: 20060508, end: 20060522
  2. OMEPRAZOLE [Suspect]
     Indication: PROPHYLAXIS AGAINST GASTROINTESTINAL ULCER
     Dosage: 20 MG QDAY PO
     Route: 048
     Dates: start: 20060511, end: 20060521
  3. CITALOPRAM [Concomitant]
  4. FRAGMIN [Concomitant]
  5. ACETAMINOPHEN [Concomitant]
  6. PROCHLORPERAZINE [Concomitant]

REACTIONS (4)
  - ALANINE AMINOTRANSFERASE INCREASED [None]
  - BLOOD BILIRUBIN INCREASED [None]
  - GAMMA-GLUTAMYLTRANSFERASE INCREASED [None]
  - LIVER FUNCTION TEST ABNORMAL [None]
